FAERS Safety Report 8851446 (Version 1)
Quarter: 2012Q4

REPORT INFORMATION
  Report Type: 
  Country: US (occurrence: US)
  Receive Date: 20121022
  Receipt Date: 20121022
  Transmission Date: 20130627
  Serious: Yes (Other)
  Sender: FDA-Public Use
  Company Number: US-AMGEN-USASP2012066493

PATIENT
  Age: 70 Year
  Sex: Female

DRUGS (5)
  1. ENBREL [Suspect]
     Indication: PSORIASIS
     Dosage: UNK
     Dates: end: 201202
  2. ENBREL [Suspect]
     Indication: PSORIATIC ARTHROPATHY
  3. HUMIRA [Suspect]
     Indication: PSORIATIC ARTHROPATHY
     Dosage: 40 mg, q2wk
     Route: 065
     Dates: start: 200605, end: 201009
  4. METHOTREXATE [Concomitant]
     Dosage: UNK
     Dates: start: 1992, end: 201108
  5. SALINE                             /00075401/ [Concomitant]
     Indication: HYPERSENSITIVITY
     Dosage: UNK

REACTIONS (9)
  - Bunion [Unknown]
  - Arthritis [Unknown]
  - Hypoaesthesia [Unknown]
  - Oedema peripheral [Unknown]
  - Drug ineffective [Unknown]
  - Scar [Unknown]
  - Seasonal allergy [Unknown]
  - Sinusitis [Unknown]
  - Injection site pain [Unknown]
